FAERS Safety Report 4515181-9 (Version None)
Quarter: 2004Q4

REPORT INFORMATION
  Report Type: 
  Country: None (occurrence: None)
  Receive Date: 20041201
  Receipt Date: 20041119
  Transmission Date: 20050328
  Serious: Yes (Disabling)
  Sender: FDA-Public Use
  Company Number: US-GLAXOSMITHKLINE-A0534687A

PATIENT
  Age: 49 Year
  Sex: Male
  Weight: 76.4 kg

DRUGS (8)
  1. EPZICOM [Suspect]
     Indication: HIV INFECTION
     Dosage: 1TAB PER DAY
     Route: 048
     Dates: start: 20041111
  2. KALETRA [Suspect]
     Indication: HIV INFECTION
     Dosage: 3CAP TWICE PER DAY
     Route: 048
     Dates: start: 20041111
  3. BACTRIM DS [Concomitant]
     Indication: PROPHYLAXIS
     Route: 048
     Dates: start: 20040925
  4. EFFEXOR [Concomitant]
     Dates: start: 20040601
  5. VALTREX [Concomitant]
     Dates: start: 20040301
  6. AMBIEN [Concomitant]
     Dates: start: 20000101
  7. KETOCONAZOLE [Concomitant]
     Dates: start: 20041105
  8. KEFLEX [Concomitant]
     Dates: start: 20041115

REACTIONS (8)
  - ASTHENIA [None]
  - DIZZINESS [None]
  - FALL [None]
  - IMMOBILE [None]
  - NAUSEA [None]
  - TINNITUS [None]
  - VERTIGO [None]
  - VOMITING [None]
